FAERS Safety Report 5240287-9 (Version None)
Quarter: 2007Q1

REPORT INFORMATION
  Report Type: 
  Country: None (occurrence: None)
  Receive Date: 20070219
  Receipt Date: 20070210
  Transmission Date: 20070707
  Serious: Yes (Death, Hospitalization)
  Sender: FDA-Public Use
  Company Number: PHHO2007MX02845

PATIENT
  Age: 81 Year
  Sex: Female

DRUGS (1)
  1. ZELMAC / HTF 919A [Suspect]
     Indication: GASTROINTESTINAL DISORDER
     Dosage: 6 MG, BID
     Route: 048
     Dates: start: 20061201

REACTIONS (6)
  - ABDOMINAL PAIN UPPER [None]
  - CARDIAC ARREST [None]
  - GASTRIC CANCER [None]
  - GASTRIC OPERATION [None]
  - ORAL INTAKE REDUCED [None]
  - POST PROCEDURAL COMPLICATION [None]
